FAERS Safety Report 11018525 (Version 2)
Quarter: 2015Q2

REPORT INFORMATION
  Report Type: Spontaneous
  Country: US (occurrence: US)
  Receive Date: 20150412
  Receipt Date: 20150524
  Transmission Date: 20150821
  Serious: No
  Sender: FDA-Public Use
  Company Number: US-JNJFOC-20130708538

PATIENT

DRUGS (8)
  1. DOXORUBICIN HYDROCHLORIDE. [Suspect]
     Active Substance: DOXORUBICIN HYDROCHLORIDE
     Indication: FALLOPIAN TUBE CANCER
     Dosage: DAY 1
     Route: 042
  2. VELIPARIB [Interacting]
     Active Substance: VELIPARIB
     Indication: FALLOPIAN TUBE CANCER
     Dosage: FROM DAY 1 TO 14 AT VARYING DOSAGES OF 50, 100, 150, 200, 300, 350 MG TWICE DAILY
     Route: 065
  3. VELIPARIB [Interacting]
     Active Substance: VELIPARIB
     Indication: OVARIAN CANCER RECURRENT
     Dosage: FROM DAY 1 TO 14 AT VARYING DOSAGES OF 50, 100, 150, 200, 300, 350 MG TWICE DAILY
     Route: 065
  4. VELIPARIB [Interacting]
     Active Substance: VELIPARIB
     Indication: MALIGNANT PERITONEAL NEOPLASM
     Dosage: FROM DAY 1 TO 14 AT VARYING DOSAGES OF 50, 100, 150, 200, 300, 350 MG TWICE DAILY
     Route: 065
  5. DOXORUBICIN HYDROCHLORIDE. [Suspect]
     Active Substance: DOXORUBICIN HYDROCHLORIDE
     Indication: OVARIAN CANCER RECURRENT
     Dosage: DAY 1
     Route: 042
  6. DOXORUBICIN HYDROCHLORIDE. [Suspect]
     Active Substance: DOXORUBICIN HYDROCHLORIDE
     Indication: TRIPLE NEGATIVE BREAST CANCER
     Dosage: DAY 1
     Route: 042
  7. DOXORUBICIN HYDROCHLORIDE. [Suspect]
     Active Substance: DOXORUBICIN HYDROCHLORIDE
     Indication: MALIGNANT PERITONEAL NEOPLASM
     Dosage: DAY 1
     Route: 042
  8. VELIPARIB [Interacting]
     Active Substance: VELIPARIB
     Indication: TRIPLE NEGATIVE BREAST CANCER
     Dosage: FROM DAY 1 TO 14 AT VARYING DOSAGES OF 50, 100, 150, 200, 300, 350 MG TWICE DAILY
     Route: 065

REACTIONS (4)
  - Drug clearance decreased [Unknown]
  - Drug interaction [Unknown]
  - Product use issue [Unknown]
  - Gastrointestinal toxicity [Unknown]
